FAERS Safety Report 25653750 (Version 5)
Quarter: 2025Q4

REPORT INFORMATION
  Report Type: Report from Study
  Country: KR (occurrence: KR)
  Receive Date: 20250807
  Receipt Date: 20251113
  Transmission Date: 20260118
  Serious: Yes (Hospitalization)
  Sender: CELLTRION
  Company Number: KR-CELLTRION INC.-2025KR026171

PATIENT

DRUGS (14)
  1. BEVACIZUMAB-ADCD [Suspect]
     Active Substance: BEVACIZUMAB-ADCD
     Indication: Colorectal cancer metastatic
     Dosage: 280 MG, Q2W (PATIENT WEIGHT: 56.3 KG)
     Route: 042
     Dates: start: 20250514, end: 20250723
  2. BEVACIZUMAB-ADCD [Suspect]
     Active Substance: BEVACIZUMAB-ADCD
     Dosage: 280 MG, Q2W (PATIENT WEIGHT: 50.7 KG)
     Route: 042
     Dates: start: 20250528, end: 20250723
  3. BEVACIZUMAB-ADCD [Suspect]
     Active Substance: BEVACIZUMAB-ADCD
     Dosage: 280 MG, Q2W ((PATIENT WEIGHT: 48.7 KG)
     Route: 042
     Dates: start: 20250611, end: 20250723
  4. BEVACIZUMAB-ADCD [Suspect]
     Active Substance: BEVACIZUMAB-ADCD
     Dosage: 280 MG, Q2W (PATIENT WEIGHT: 48.7 KG)
     Route: 042
     Dates: start: 20250723, end: 20250723
  5. FLUOROURACIL [Suspect]
     Active Substance: FLUOROURACIL
     Indication: Colorectal cancer metastatic
     Dosage: UNK
     Dates: start: 20250514
  6. IRINOTECAN HYDROCHLORIDE [Suspect]
     Active Substance: IRINOTECAN HYDROCHLORIDE
     Indication: Colorectal cancer metastatic
     Dosage: UNK
     Dates: start: 20250514
  7. LEUCOVORIN CALCIUM [Concomitant]
     Active Substance: LEUCOVORIN CALCIUM
     Indication: Chemotherapy
     Dosage: 10 ML, QD
     Route: 042
     Dates: start: 20250514
  8. TOVASTIN [Concomitant]
     Indication: Hypertension
     Dosage: 10 MG
     Route: 048
  9. EMPAGLIFLOZIN\LINAGLIPTIN [Concomitant]
     Active Substance: EMPAGLIFLOZIN\LINAGLIPTIN
     Indication: Hypertension
     Dosage: 10/5 MG
     Route: 048
  10. GLUPEN [Concomitant]
     Indication: Diabetes mellitus
     Dosage: 2 MG
     Route: 048
  11. NEXIUM [Concomitant]
     Active Substance: ESOMEPRAZOLE MAGNESIUM
     Dosage: 40 MG
     Route: 048
  12. ALFOATILIN [Concomitant]
     Dosage: 400 MG
     Route: 048
  13. OMACAN [Concomitant]
     Dosage: 1000 MG
     Route: 048
  14. DIABEX [Concomitant]
     Active Substance: METFORMIN HYDROCHLORIDE
     Indication: Diabetes mellitus
     Dosage: 1000 MG
     Route: 048

REACTIONS (1)
  - Pneumothorax [Recovered/Resolved]

NARRATIVE: CASE EVENT DATE: 20250625
